FAERS Safety Report 19421218 (Version 1)
Quarter: 2021Q2

REPORT INFORMATION
  Report Type: Spontaneous
  Country: DE (occurrence: DE)
  Receive Date: 20210616
  Receipt Date: 20210616
  Transmission Date: 20210717
  Serious: Yes (Hospitalization, Other)
  Sender: FDA-Public Use
  Company Number: DE-AUROBINDO-AUR-APL-2017-06328

PATIENT
  Age: 48 Year
  Sex: Male

DRUGS (2)
  1. AMOXICILLIN. [Suspect]
     Active Substance: AMOXICILLIN
     Indication: OTITIS MEDIA
     Dosage: UNK
     Route: 065
  2. PARACETAMOL APO?ROT 500 MG FILM COATED TABLETS [Suspect]
     Active Substance: ACETAMINOPHEN
     Indication: OTITIS MEDIA
     Dosage: UNK
     Route: 065

REACTIONS (9)
  - Pyrexia [Recovered/Resolved]
  - Neutrophilia [Recovered/Resolved]
  - C-reactive protein increased [Recovered/Resolved]
  - Skin lesion [Recovered/Resolved]
  - Leukocytosis [Recovered/Resolved]
  - Acute generalised exanthematous pustulosis [Recovered/Resolved]
  - Liver disorder [Recovered/Resolved]
  - Oral mucosa erosion [Recovered/Resolved]
  - Rash [Recovered/Resolved]
